FAERS Safety Report 8616339-X (Version None)
Quarter: 2012Q3

REPORT INFORMATION
  Report Type: 
  Country: None (occurrence: None)
  Receive Date: 20120823
  Receipt Date: 20120814
  Transmission Date: 20120928
  Serious: Yes (Hospitalization)
  Sender: FDA-Public Use
  Company Number: FR-ASTRAZENECA-2012SE58101

PATIENT
  Age: 20771 Day
  Sex: Male

DRUGS (2)
  1. CRESTOR [Suspect]
     Route: 048
     Dates: start: 20120516
  2. CRESTOR [Suspect]
     Indication: MYOCARDIAL ISCHAEMIA
     Route: 048
     Dates: start: 20120320, end: 20120516

REACTIONS (4)
  - NEURALGIA [None]
  - HEADACHE [None]
  - AXONAL NEUROPATHY [None]
  - NECK PAIN [None]
